FAERS Safety Report 7157915-3 (Version None)
Quarter: 2010Q4

REPORT INFORMATION
  Report Type: 
  Country: None (occurrence: None)
  Receive Date: 20101214
  Receipt Date: 20101206
  Transmission Date: 20110411
  Serious: Yes (Other)
  Sender: FDA-Public Use
  Company Number: US-JNJFOC-20101203208

PATIENT
  Sex: Female
  Weight: 61.24 kg

DRUGS (2)
  1. TOPAMAX [Suspect]
     Indication: MIGRAINE
     Route: 048
  2. TOPAMAX [Suspect]
     Dosage: DECREASING DOSE OF 25 MG INCREMENTS PER WEEK
     Route: 048

REACTIONS (5)
  - AMNESIA [None]
  - CONFUSIONAL STATE [None]
  - DISORIENTATION [None]
  - DISTURBANCE IN ATTENTION [None]
  - INTENTIONAL DRUG MISUSE [None]
